FAERS Safety Report 12088118 (Version 2)
Quarter: 2016Q1

REPORT INFORMATION
  Report Type: Spontaneous
  Country: ES (occurrence: ES)
  Receive Date: 20160218
  Receipt Date: 20160308
  Transmission Date: 20160526
  Serious: Yes (Hospitalization)
  Sender: FDA-Public Use
  Company Number: ES-HOSPIRA-3166815

PATIENT
  Age: 66 Year
  Sex: Male
  Weight: 92.8 kg

DRUGS (20)
  1. RANITIDINE [Concomitant]
     Active Substance: RANITIDINE\RANITIDINE HYDROCHLORIDE
     Indication: CHEMOTHERAPY
     Route: 040
     Dates: start: 20150520
  2. FLUOROURACIL. [Suspect]
     Active Substance: FLUOROURACIL
     Indication: COLORECTAL CANCER
     Dosage: UP TO 15 MINUTES, DAY 1 OF EACH 14-DAY CYCLE
     Route: 042
     Dates: start: 20150520, end: 20151229
  3. CLEXANE [Concomitant]
     Active Substance: ENOXAPARIN SODIUM
     Indication: THROMBOSIS PROPHYLAXIS
     Route: 058
     Dates: start: 20160115
  4. LACTULOSA [Concomitant]
     Active Substance: LACTULOSE
     Indication: CONSTIPATION
     Route: 048
     Dates: start: 20160115
  5. FORTASEC                           /00384301/ [Concomitant]
     Indication: DIARRHOEA
     Route: 048
     Dates: start: 20150915, end: 20150915
  6. ENEMA CASEN                        /01858901/ [Concomitant]
     Indication: CONSTIPATION
     Route: 054
     Dates: start: 20160115
  7. PARACETAMOL [Concomitant]
     Active Substance: ACETAMINOPHEN
     Indication: PAIN
     Route: 040
     Dates: start: 20150115
  8. PRAVASTATINA [Concomitant]
     Active Substance: PRAVASTATIN SODIUM
     Indication: HYPERCHOLESTEROLAEMIA
     Route: 048
     Dates: start: 20150113
  9. ATROPINE. [Concomitant]
     Active Substance: ATROPINE
     Indication: CHEMOTHERAPY
     Route: 040
     Dates: start: 20150520
  10. DEXAMETASONA                       /00016001/ [Concomitant]
     Indication: CHEMOTHERAPY
     Route: 040
     Dates: start: 20150502
  11. DEXAMETASONA                       /00016001/ [Concomitant]
     Indication: PREMEDICATION
     Route: 040
     Dates: start: 20150502
  12. RANITIDINE [Concomitant]
     Active Substance: RANITIDINE\RANITIDINE HYDROCHLORIDE
     Indication: PREMEDICATION
     Route: 040
     Dates: start: 20150520
  13. FOLINIC ACID [Concomitant]
     Active Substance: LEUCOVORIN
     Indication: COLORECTAL CANCER
     Dosage: DAY 1 OF EVERY 14 DAY CYCLE
     Route: 042
     Dates: start: 20150520, end: 20151229
  14. BEVACIZUMAB [Suspect]
     Active Substance: BEVACIZUMAB
     Indication: COLORECTAL CANCER
     Route: 042
     Dates: start: 20150520, end: 20151229
  15. FLUOROURACIL. [Suspect]
     Active Substance: FLUOROURACIL
     Indication: COLORECTAL CANCER
     Dosage: UP TO 15 MINUTES, DAY 1 OF EACH 14-DAY CYCLE
     Route: 040
     Dates: start: 20150520, end: 20151229
  16. VELIPARIB [Suspect]
     Active Substance: VELIPARIB
     Indication: COLORECTAL CANCER
     Dosage: DAY-2 THROUGH DAY 5 OF EACH 14-DAY CYCLE
     Route: 048
     Dates: start: 20150518, end: 20151229
  17. ONDANSETROM                        /00955301/ [Concomitant]
     Indication: CHEMOTHERAPY
     Route: 040
     Dates: start: 20150520
  18. ONDANSETROM                        /00955301/ [Concomitant]
     Indication: PREMEDICATION
     Route: 040
     Dates: start: 20150520
  19. ATROPINE. [Concomitant]
     Active Substance: ATROPINE
     Indication: PREMEDICATION
     Route: 040
     Dates: start: 20150520
  20. IRINOTECAN HYDROCHLORIDE. [Suspect]
     Active Substance: IRINOTECAN HYDROCHLORIDE
     Indication: COLORECTAL CANCER
     Dosage: DAY 1 OF EACH 14-DAY CYCLE
     Route: 042
     Dates: start: 20150520, end: 20151229

REACTIONS (4)
  - Abdominal abscess [Unknown]
  - Urinary retention [Unknown]
  - Constipation [Unknown]
  - Pyrexia [Unknown]

NARRATIVE: CASE EVENT DATE: 20160114
